FAERS Safety Report 10449439 (Version 1)
Quarter: 2014Q3

REPORT INFORMATION
  Report Type: Spontaneous
  Country: ES (occurrence: ES)
  Receive Date: 20140912
  Receipt Date: 20140912
  Transmission Date: 20150326
  Serious: Yes (Hospitalization)
  Sender: FDA-Public Use
  Company Number: ES-ELI_LILLY_AND_COMPANY-ES201409000596

PATIENT
  Age: 49 Year
  Sex: Male

DRUGS (6)
  1. ATROVENT [Concomitant]
     Active Substance: IPRATROPIUM BROMIDE
     Indication: CHRONIC OBSTRUCTIVE PULMONARY DISEASE
     Dosage: UNK, UNKNOWN
     Route: 065
     Dates: start: 2012, end: 2013
  2. ELONTRIL [Concomitant]
     Active Substance: BUPROPION HYDROCHLORIDE
     Indication: ADJUSTMENT DISORDER WITH DISTURBANCE OF CONDUCT
     Dosage: 150 MG, QD
     Route: 065
     Dates: start: 20130710, end: 20130919
  3. ZYPREXA [Suspect]
     Active Substance: OLANZAPINE
     Indication: ADJUSTMENT DISORDER WITH DISTURBANCE OF CONDUCT
     Dosage: 10 MG, QD
     Route: 048
  4. HIPERTENE [Concomitant]
     Indication: HYPERTENSION
     Dosage: 20 MG, QD
     Route: 065
     Dates: start: 201205, end: 201209
  5. TRILEPTAL [Suspect]
     Active Substance: OXCARBAZEPINE
     Indication: ADJUSTMENT DISORDER WITH DISTURBANCE OF CONDUCT
     Dosage: 1.8 G, QD
     Route: 048
     Dates: start: 20130726, end: 20130925
  6. AMLODIPINE [Concomitant]
     Active Substance: AMLODIPINE BESYLATE
     Indication: HYPERTENSION
     Dosage: 5 MG, QD
     Route: 065
     Dates: start: 201205, end: 201309

REACTIONS (3)
  - Cough [Unknown]
  - Antidiuretic hormone abnormality [Recovered/Resolved]
  - Off label use [Unknown]

NARRATIVE: CASE EVENT DATE: 20130919
